FAERS Safety Report 16765813 (Version 1)
Quarter: 2019Q3

REPORT INFORMATION
  Report Type: Spontaneous
  Country: US (occurrence: US)
  Receive Date: 20190713
  Receipt Date: 20190713
  Transmission Date: 20191005
  Serious: Yes (Hospitalization)
  Sender: FDA-Public Use
  Company Number: None

PATIENT
  Age: 63 Year
  Sex: Male
  Weight: 120.9 kg

DRUGS (1)
  1. OLANZAPINE. [Suspect]
     Active Substance: OLANZAPINE
     Dates: end: 20190706

REACTIONS (4)
  - Thirst [None]
  - Blood glucose increased [None]
  - Ketoacidosis [None]
  - Pollakiuria [None]

NARRATIVE: CASE EVENT DATE: 20190710
